FAERS Safety Report 5086503-8 (Version None)
Quarter: 2006Q3

REPORT INFORMATION
  Report Type: 
  Country: None (occurrence: None)
  Receive Date: 20060818
  Receipt Date: 20060804
  Transmission Date: 20061208
  Serious: Yes (Other)
  Sender: FDA-Public Use
  Company Number: 2006-BP-0890RO

PATIENT
  Age: 25 Year
  Sex: Female

DRUGS (4)
  1. METOCLOPRAMIDE [Suspect]
     Indication: NAUSEA
     Dosage: 10 MG QID X 2 DAYS, IV
     Route: 042
  2. CYTARABINE [Concomitant]
  3. IDARUBICIN HCL [Concomitant]
  4. GRANISETRON (GRANISETRON) [Concomitant]

REACTIONS (1)
  - DYSTONIA [None]
